FAERS Safety Report 9725231 (Version 2)
Quarter: 2013Q4

REPORT INFORMATION
  Report Type: Report from Study
  Country: JP (occurrence: JP)
  Receive Date: 20131203
  Receipt Date: 20131227
  Transmission Date: 20140711
  Serious: Yes (Death)
  Sender: FDA-Public Use
  Company Number: JP-AMGEN-JPNCT2013084551

PATIENT
  Age: 66 Year
  Sex: Male
  Weight: 75 kg

DRUGS (32)
  1. ROMIPLATE [Suspect]
     Indication: IMMUNE THROMBOCYTOPENIC PURPURA
     Dosage: 9 MUG/KG, QWK
     Route: 058
     Dates: start: 20130830, end: 20131108
  2. PREDONINE [Concomitant]
     Indication: IMMUNE THROMBOCYTOPENIC PURPURA
     Dosage: 30 MG, UNK
     Route: 048
     Dates: start: 20130822, end: 20131022
  3. PRIDOL                             /00049602/ [Concomitant]
     Indication: IMMUNE THROMBOCYTOPENIC PURPURA
     Dosage: 500 MG, UNK
     Route: 065
     Dates: start: 20130902, end: 20130923
  4. VENOGLOBULIN-IH [Concomitant]
     Indication: IMMUNE THROMBOCYTOPENIC PURPURA
     Dosage: 20000 MG, UNK
     Route: 065
     Dates: start: 20130826, end: 20130830
  5. VENILON [Concomitant]
     Indication: IMMUNE THROMBOCYTOPENIC PURPURA
     Dosage: 20000 MG, UNK
     Route: 065
     Dates: start: 20130921, end: 20130925
  6. IMURAN                             /00001501/ [Concomitant]
     Indication: IMMUNE THROMBOCYTOPENIC PURPURA
     Dosage: 50 MG, UNK
     Route: 048
     Dates: start: 20131001, end: 20131020
  7. PROPOFOL [Concomitant]
     Indication: SMALL INTESTINE CARCINOMA
     Dosage: UNK
     Route: 048
  8. ESLAX [Concomitant]
     Indication: SMALL INTESTINE CARCINOMA
     Dosage: UNK
     Route: 065
  9. SOLYUGEN [Concomitant]
     Indication: SMALL INTESTINE CARCINOMA
     Dosage: UNK
     Route: 065
  10. PRECEDEX [Concomitant]
     Indication: SMALL INTESTINE CARCINOMA
     Dosage: UNK
     Route: 065
  11. CINAL [Concomitant]
     Indication: PROPHYLAXIS
     Dosage: UNK
     Route: 048
  12. LASIX                              /00032601/ [Concomitant]
     Indication: SMALL INTESTINE CARCINOMA
     Dosage: UNK
     Route: 048
  13. RASENAZOLIN [Concomitant]
     Indication: SMALL INTESTINE CARCINOMA
     Dosage: UNK
     Route: 065
  14. ALBUMINAR [Concomitant]
     Indication: SMALL INTESTINE CARCINOMA
     Dosage: UNK
     Route: 065
  15. ROPION [Concomitant]
     Indication: SMALL INTESTINE CARCINOMA
     Dosage: UNK
     Route: 065
  16. ROHYPNOL [Concomitant]
     Indication: SMALL INTESTINE CARCINOMA
     Dosage: UNK
     Route: 065
  17. ATARAX-P                           /00058402/ [Concomitant]
     Indication: SMALL INTESTINE CARCINOMA
     Dosage: UNK
     Route: 065
  18. PENTAGIN                           /00052103/ [Concomitant]
     Indication: SMALL INTESTINE CARCINOMA
     Dosage: UNK
     Route: 065
  19. GASTER                             /00706001/ [Concomitant]
     Indication: PROPHYLAXIS
     Dosage: UNK
     Route: 065
  20. FERROMIA [Concomitant]
     Indication: SMALL INTESTINE CARCINOMA
     Dosage: UNK
     Route: 048
  21. TAKEPRON [Concomitant]
     Indication: SMALL INTESTINE CARCINOMA
     Dosage: UNK
     Route: 048
  22. ADONA                              /00056903/ [Concomitant]
     Indication: SMALL INTESTINE CARCINOMA
     Dosage: UNK
     Route: 065
  23. TRANSAMIN [Concomitant]
     Indication: SMALL INTESTINE CARCINOMA
     Dosage: UNK
     Route: 065
  24. SENNOSIDE                          /00571901/ [Concomitant]
     Indication: CONSTIPATION
     Dosage: UNK
     Route: 048
  25. MAGLAX [Concomitant]
     Indication: CONSTIPATION
     Dosage: UNK
     Route: 048
  26. PANTOSIN [Concomitant]
     Indication: CONSTIPATION
     Dosage: UNK
     Route: 065
  27. KAYTWO [Concomitant]
     Indication: SMALL INTESTINE CARCINOMA
     Dosage: UNK
     Route: 065
  28. LENDORMIN [Concomitant]
     Indication: SMALL INTESTINE CARCINOMA
     Dosage: UNK
     Route: 048
  29. BFLUID [Concomitant]
     Indication: SMALL INTESTINE CARCINOMA
     Dosage: UNK
     Route: 065
  30. FENTANYL                           /00174602/ [Concomitant]
     Indication: SMALL INTESTINE CARCINOMA
     Dosage: UNK
     Route: 065
  31. NORADRENALINE                      /00127501/ [Concomitant]
     Indication: SMALL INTESTINE CARCINOMA
     Dosage: UNK
     Route: 065
  32. CERCINE [Concomitant]
     Indication: SMALL INTESTINE CARCINOMA
     Dosage: UNK
     Route: 065

REACTIONS (2)
  - Suture rupture [Fatal]
  - Multi-organ failure [Fatal]
